FAERS Safety Report 8775270 (Version 3)
Quarter: 2012Q4

REPORT INFORMATION
  Report Type: Report from Study
  Country: BE (occurrence: BE)
  Receive Date: 20120910
  Receipt Date: 20121025
  Transmission Date: 20130627
  Serious: Yes (Life-Threatening, Hospitalization)
  Sender: FDA-Public Use
  Company Number: BE-AMGEN-BELCT2012055885

PATIENT
  Age: 18 Year
  Sex: Female
  Weight: 57.2 kg

DRUGS (3)
  1. ETANERCEPT [Suspect]
     Indication: JUVENILE ARTHRITIS
     Dosage: 50 mg, weekly
     Route: 058
     Dates: start: 20100521, end: 20120819
  2. LEDERTREXATE                       /00113801/ [Concomitant]
     Indication: JUVENILE ARTHRITIS
     Dosage: 7.5 mg, weekly
     Route: 048
     Dates: start: 20120411
  3. FOLIC ACID [Concomitant]
     Indication: JUVENILE ARTHRITIS
     Dosage: 1 mg, 1x/day
     Route: 048
     Dates: start: 200909

REACTIONS (1)
  - Hodgkin^s disease [Not Recovered/Not Resolved]
